FAERS Safety Report 24377787 (Version 1)
Quarter: 2024Q3

REPORT INFORMATION
  Report Type: Spontaneous
  Country: FR (occurrence: FR)
  Receive Date: 20240930
  Receipt Date: 20240930
  Transmission Date: 20241017
  Serious: No
  Sender: SANDOZ
  Company Number: FR-SANDOZ-SDZ2024FR083002

PATIENT
  Age: 16 Year
  Sex: Male

DRUGS (1)
  1. OMNITROPE [Suspect]
     Active Substance: SOMATROPIN
     Indication: Growth retardation
     Dosage: 2 MG, QD
     Route: 065
     Dates: start: 202307

REACTIONS (2)
  - Drug dose omission by device [Unknown]
  - Device issue [Unknown]
